FAERS Safety Report 13042893 (Version 2)
Quarter: 2021Q2

REPORT INFORMATION
  Report Type: Spontaneous
  Country: US (occurrence: US)
  Receive Date: 20161219
  Receipt Date: 20210514
  Transmission Date: 20210716
  Serious: No
  Sender: FDA-Public Use
  Company Number: US-JAZZ-2016-US-022442

PATIENT
  Age: 43 Year
  Sex: Female

DRUGS (21)
  1. XYREM [Suspect]
     Active Substance: SODIUM OXYBATE
     Dosage: 4.5 G, BID
     Route: 048
     Dates: start: 201109
  2. TRAMADOL. [Concomitant]
     Active Substance: TRAMADOL
  3. HETLIOZ [Concomitant]
     Active Substance: TASIMELTEON
  4. LUVOX [Suspect]
     Active Substance: FLUVOXAMINE MALEATE
     Indication: PRODUCT USED FOR UNKNOWN INDICATION
     Dosage: UNK
     Dates: start: 20161106
  5. DEPLIN [Concomitant]
     Active Substance: LEVOMEFOLATE CALCIUM
  6. FETZIMA [Concomitant]
     Active Substance: LEVOMILNACIPRAN HYDROCHLORIDE
  7. ELIDEL [Concomitant]
     Active Substance: PIMECROLIMUS
  8. XYREM [Suspect]
     Active Substance: SODIUM OXYBATE
     Indication: NARCOLEPSY
     Dosage: 2.25 G, BID
     Route: 048
     Dates: start: 200803, end: 2008
  9. CLONAZEPAM GENPHARMA [Concomitant]
  10. BRINTELLIX [Concomitant]
     Active Substance: VORTIOXETINE HYDROBROMIDE
  11. PROPRANOLOL [PROPRANOLOL HYDROCHLORIDE] [Concomitant]
     Active Substance: PROPRANOLOL HYDROCHLORIDE
  12. LEXAPRO [Concomitant]
     Active Substance: ESCITALOPRAM OXALATE
  13. XYREM [Suspect]
     Active Substance: SODIUM OXYBATE
     Dosage: DOSE ADJUSTMENT
     Route: 048
     Dates: start: 2008, end: 2011
  14. METHYLPREDNISOLONE [METHYLPREDNISOLONE SODIUM SUCCINATE] [Concomitant]
     Active Substance: METHYLPREDNISOLONE SODIUM SUCCINATE
  15. CLARITIN?D NOS [Concomitant]
     Active Substance: LORATADINE\PSEUDOEPHEDRINE SULFATE
  16. HYDROCODONE/ACETAMINOPHEN [Concomitant]
     Active Substance: ACETAMINOPHEN\HYDROCODONE
  17. FLORA Q [LACTOBACILLUS ACIDOPHILUS] [Concomitant]
  18. NORFLEX [Suspect]
     Active Substance: ORPHENADRINE CITRATE
     Indication: PRODUCT USED FOR UNKNOWN INDICATION
     Dosage: UNK
     Dates: start: 20161107
  19. ALLEGRA?D [FEXOFENADINE;PSEUDOEPHEDRINE HYDROCHLORIDE] [Concomitant]
  20. L?METHYLFOLATE CALCIUM [Concomitant]
     Active Substance: LEVOMEFOLATE CALCIUM
  21. VITAMIN D [ERGOCALCIFEROL] [Concomitant]
     Active Substance: ERGOCALCIFEROL

REACTIONS (4)
  - Myalgia [Unknown]
  - Anxiety [Unknown]
  - Periarthritis [Unknown]
  - Panic attack [Unknown]

NARRATIVE: CASE EVENT DATE: 201611
